FAERS Safety Report 5606565-6 (Version None)
Quarter: 2008Q1

REPORT INFORMATION
  Report Type: 
  Country: None (occurrence: None)
  Receive Date: 20080129
  Receipt Date: 20080124
  Transmission Date: 20080703
  Serious: Yes (Other)
  Sender: FDA-Public Use
  Company Number: US-AVENTIS-200718606US

PATIENT
  Sex: Female

DRUGS (12)
  1. LOVENOX [Suspect]
     Indication: PULMONARY EMBOLISM
     Route: 051
     Dates: start: 20071113, end: 20071225
  2. LOVENOX [Suspect]
     Dosage: DOSE QUANTITY: 80
  3. LOVENOX [Suspect]
     Route: 051
     Dates: start: 20071113, end: 20071225
  4. LOVENOX [Suspect]
     Dosage: DOSE QUANTITY: 80
  5. LOVENOX [Suspect]
     Route: 051
     Dates: start: 20071113, end: 20071225
  6. LOVENOX [Suspect]
     Dosage: DOSE QUANTITY: 80
  7. PRENATAL VITAMINS                  /01549301/ [Concomitant]
     Dosage: DOSE: UNK
  8. HYDROCODONE BITARTRATE [Concomitant]
     Indication: PAIN
     Dosage: DOSE: ^5 MG^
     Dates: start: 20070101, end: 20071112
  9. FLEXERIL                           /00428402/ [Concomitant]
     Dosage: DOSE: 10 MG
     Dates: start: 20070101, end: 20071112
  10. TYLENOL W/ CODEINE [Concomitant]
     Indication: PAIN
     Dates: start: 20070101, end: 20071112
  11. ANTI-INFLAMMATORY [Concomitant]
     Dates: start: 20070101, end: 20071112
  12. DEMEROL [Concomitant]
     Dates: start: 20071112, end: 20071118

REACTIONS (2)
  - ABORTION SPONTANEOUS [None]
  - BLOOD DISORDER [None]
